FAERS Safety Report 7675850-9 (Version None)
Quarter: 2011Q3

REPORT INFORMATION
  Report Type: 
  Country: None (occurrence: None)
  Receive Date: 20110811
  Receipt Date: 20110730
  Transmission Date: 20111222
  Serious: Yes (Other)
  Sender: FDA-Public Use
  Company Number: GB-PAR PHARMACEUTICAL, INC-2011SCPR003149

PATIENT

DRUGS (10)
  1. BETAMETHASONE [Suspect]
     Indication: CYSTOID MACULAR OEDEMA
  2. DEXAMETHASONE [Suspect]
     Indication: UVEITIS
  3. BETAMETHASONE [Suspect]
     Indication: UVEITIS
  4. DEXAMETHASONE [Suspect]
     Indication: CYTOMEGALOVIRUS CHORIORETINITIS
     Dosage: 6 TIMES DAILY
     Route: 047
  5. TENOFOVIR DISOPROXIL FUMARATE [Suspect]
     Indication: HIV INFECTION
     Dosage: 300 MG, ONCE DAILY
     Route: 065
  6. RITONAVIR [Suspect]
     Indication: HIV INFECTION
     Dosage: 100 MG, ONCE DAILY
     Route: 065
  7. ATAZANAVIR [Suspect]
     Indication: HIV INFECTION
     Dosage: 300 MG, ONCE DAILY
     Route: 065
  8. EMTRICITABINE [Suspect]
     Indication: HIV INFECTION
     Dosage: 200 MG ONCE DAILY
     Route: 065
  9. BETAMETHASONE [Suspect]
     Indication: CYTOMEGALOVIRUS CHORIORETINITIS
     Dosage: AT NIGHT
     Route: 047
  10. DEXAMETHASONE [Suspect]
     Indication: CYSTOID MACULAR OEDEMA

REACTIONS (3)
  - CUSHING'S SYNDROME [None]
  - OSTEONECROSIS [None]
  - ADRENAL SUPPRESSION [None]
